FAERS Safety Report 8809810 (Version 1)
Quarter: 2012Q4

REPORT INFORMATION
  Report Type: 
  Country: SE (occurrence: SE)
  Receive Date: 20120926
  Receipt Date: 20120926
  Transmission Date: 20130627
  Serious: Yes (Hospitalization)
  Sender: FDA-Public Use
  Company Number: SE-ROCHE-1132297

PATIENT
  Sex: Male

DRUGS (1)
  1. MABTHERA [Suspect]
     Indication: THROMBOCYTOPENIA
     Route: 065
     Dates: start: 20120807, end: 20120912

REACTIONS (7)
  - Influenza [Recovered/Resolved]
  - Pruritus [Unknown]
  - Paraesthesia oral [Unknown]
  - Chest pain [Unknown]
  - Unresponsive to stimuli [Unknown]
  - Rash [Unknown]
  - Rash [Unknown]
